FAERS Safety Report 7620860-0 (Version None)
Quarter: 2011Q3

REPORT INFORMATION
  Report Type: 
  Country: None (occurrence: None)
  Receive Date: 20110719
  Receipt Date: 20110711
  Transmission Date: 20111222
  Serious: Yes (Other)
  Sender: FDA-Public Use
  Company Number: US-ABBOTT-11P-163-0838336-00

PATIENT
  Sex: Female
  Weight: 65.83 kg

DRUGS (1)
  1. HUMIRA [Suspect]
     Indication: CROHN'S DISEASE
     Dates: start: 20100101

REACTIONS (10)
  - FEELING ABNORMAL [None]
  - RECTAL ABSCESS [None]
  - HEADACHE [None]
  - CLOSTRIDIUM TEST POSITIVE [None]
  - LOCAL SWELLING [None]
  - INJECTION SITE PAIN [None]
  - FISTULA [None]
  - DIARRHOEA [None]
  - MOUTH ULCERATION [None]
  - STRESS [None]
